FAERS Safety Report 7369224-8 (Version None)
Quarter: 2011Q1

REPORT INFORMATION
  Report Type: 
  Country: None (occurrence: None)
  Receive Date: 20110323
  Receipt Date: 20110315
  Transmission Date: 20110831
  Serious: Yes (Hospitalization)
  Sender: FDA-Public Use
  Company Number: NL-ROCHE-765064

PATIENT
  Sex: Female

DRUGS (4)
  1. BEVACIZUMAB [Suspect]
     Indication: COLORECTAL CANCER
     Dosage: LAST DOSE PRIOR TO SAE:25 JAN 2011
     Route: 042
     Dates: start: 20090120
  2. CAPECITABINE [Suspect]
     Indication: COLORECTAL CANCER
     Dosage: LAST DOSE PRIOR TO SAE:25 JAN 2011
     Route: 048
     Dates: start: 20090120
  3. LOSFERON [Concomitant]
  4. BROMAZEPAM [Concomitant]

REACTIONS (1)
  - ILEAL PERFORATION [None]
